FAERS Safety Report 14802758 (Version 2)
Quarter: 2018Q2

REPORT INFORMATION
  Report Type: Spontaneous
  Country: GB (occurrence: GB)
  Receive Date: 20180424
  Receipt Date: 20180521
  Transmission Date: 20180711
  Serious: Yes (Other)
  Sender: FDA-Public Use
  Company Number: GB-PFIZER INC-2018159899

PATIENT

DRUGS (13)
  1. BACTERIOSTATIC SODIUM CHLORIDE [Suspect]
     Active Substance: SODIUM CHLORIDE
     Dosage: UNK
  2. FLUCLOXACILLIN [Suspect]
     Active Substance: FLUCLOXACILLIN
     Dosage: 8 G ,VIA MIDLINE IN LV10 DEVICE (CONTINUOUS INFUSION)
     Route: 042
  3. CITRATE [Suspect]
     Active Substance: CITRIC ACID MONOHYDRATE
     Dosage: PH 6.5 - 7.5, VIA MIDLINE IN LV10 DEVICE (CONTINUOUS INFUSION)
     Route: 042
  4. CITRATE [Suspect]
     Active Substance: CITRIC ACID MONOHYDRATE
     Dosage: PH 6.5 - 7.5, VIA MIDLINE IN LV10UNK
  5. WATER FOR INJECTIONS [Suspect]
     Active Substance: WATER
     Dosage: UNK
  6. BACTERIOSTATIC SODIUM CHLORIDE [Suspect]
     Active Substance: SODIUM CHLORIDE
     Indication: MEDICATION DILUTION
     Dosage: VIA MIDLINE IN LV10 DEVICE (CONTINUOUS INFUSION)
     Route: 042
  7. FLUCLOXACILLIN [Suspect]
     Active Substance: FLUCLOXACILLIN
     Dosage: UNK
  8. BACTERIOSTATIC SODIUM CHLORIDE [Suspect]
     Active Substance: SODIUM CHLORIDE
     Dosage: UNK
  9. WATER FOR INJECTIONS [Suspect]
     Active Substance: WATER
     Dosage: UNK
  10. FLUCLOXACILLIN [Suspect]
     Active Substance: FLUCLOXACILLIN
     Dosage: UNK
  11. CITRATE [Suspect]
     Active Substance: CITRIC ACID MONOHYDRATE
     Dosage: PH 6.5 - 7.5, VIA MIDLINE IN LV10
  12. BACTERIOSTATIC SODIUM CHLORIDE [Suspect]
     Active Substance: SODIUM CHLORIDE
     Dosage: UNK
  13. WATER FOR INJECTIONS [Suspect]
     Active Substance: WATER
     Indication: MEDICATION DILUTION
     Dosage: VIA MIDLINE IN LV10 DEVICE (CONTINUOUS INFUSION)
     Route: 042

REACTIONS (1)
  - Thrombosis [Unknown]
